FAERS Safety Report 24125871 (Version 5)
Quarter: 2025Q3

REPORT INFORMATION
  Report Type: Spontaneous
  Country: EU (occurrence: EU)
  Receive Date: 20240723
  Receipt Date: 20250926
  Transmission Date: 20251021
  Serious: Yes (Other)
  Sender: MYLAN
  Company Number: EU-INDIVIOR EUROPE LIMITED-INDV-145808-2024

PATIENT
  Age: 36 Year
  Sex: Female

DRUGS (38)
  1. BUPRENORPHINE [Suspect]
     Active Substance: BUPRENORPHINE
     Indication: Product used for unknown indication
  2. BUPRENORPHINE [Suspect]
     Active Substance: BUPRENORPHINE
     Route: 065
  3. BUPRENORPHINE [Suspect]
     Active Substance: BUPRENORPHINE
     Route: 065
  4. BUPRENORPHINE [Suspect]
     Active Substance: BUPRENORPHINE
  5. ZOPICLONE [Suspect]
     Active Substance: ZOPICLONE
     Indication: Product used for unknown indication
  6. ZOPICLONE [Suspect]
     Active Substance: ZOPICLONE
     Route: 065
  7. ZOPICLONE [Suspect]
     Active Substance: ZOPICLONE
     Route: 065
  8. ZOPICLONE [Suspect]
     Active Substance: ZOPICLONE
  9. CLONAZEPAM [Suspect]
     Active Substance: CLONAZEPAM
     Indication: Product used for unknown indication
  10. CLONAZEPAM [Suspect]
     Active Substance: CLONAZEPAM
     Route: 065
  11. CLONAZEPAM [Suspect]
     Active Substance: CLONAZEPAM
     Route: 065
  12. CLONAZEPAM [Suspect]
     Active Substance: CLONAZEPAM
  13. PREGABALIN [Suspect]
     Active Substance: PREGABALIN
     Indication: Product used for unknown indication
  14. PREGABALIN [Suspect]
     Active Substance: PREGABALIN
     Route: 065
  15. PREGABALIN [Suspect]
     Active Substance: PREGABALIN
     Route: 065
  16. PREGABALIN [Suspect]
     Active Substance: PREGABALIN
  17. FENTANYL [Suspect]
     Active Substance: FENTANYL
     Indication: Product used for unknown indication
  18. FENTANYL [Suspect]
     Active Substance: FENTANYL
     Route: 065
  19. FENTANYL [Suspect]
     Active Substance: FENTANYL
     Route: 065
  20. FENTANYL [Suspect]
     Active Substance: FENTANYL
  21. CODEINE [Suspect]
     Active Substance: CODEINE
     Indication: Product used for unknown indication
     Route: 065
  22. CODEINE [Suspect]
     Active Substance: CODEINE
  23. ALCOHOL [Suspect]
     Active Substance: ALCOHOL
     Indication: Product used for unknown indication
  24. ALCOHOL [Suspect]
     Active Substance: ALCOHOL
     Route: 048
  25. ALCOHOL [Suspect]
     Active Substance: ALCOHOL
     Route: 048
  26. ALCOHOL [Suspect]
     Active Substance: ALCOHOL
  27. MORPHINE SULFATE [Suspect]
     Active Substance: MORPHINE SULFATE
     Indication: Product used for unknown indication
  28. MORPHINE SULFATE [Suspect]
     Active Substance: MORPHINE SULFATE
     Route: 065
  29. MORPHINE SULFATE [Suspect]
     Active Substance: MORPHINE SULFATE
     Route: 065
  30. MORPHINE SULFATE [Suspect]
     Active Substance: MORPHINE SULFATE
  31. TENAMFETAMINE [Suspect]
     Active Substance: TENAMFETAMINE
     Indication: Product used for unknown indication
  32. TENAMFETAMINE [Suspect]
     Active Substance: TENAMFETAMINE
     Route: 065
  33. TENAMFETAMINE [Suspect]
     Active Substance: TENAMFETAMINE
     Route: 065
  34. TENAMFETAMINE [Suspect]
     Active Substance: TENAMFETAMINE
  35. TENAMFETAMINE [Suspect]
     Active Substance: TENAMFETAMINE
     Indication: Product used for unknown indication
  36. TENAMFETAMINE [Suspect]
     Active Substance: TENAMFETAMINE
     Route: 065
  37. TENAMFETAMINE [Suspect]
     Active Substance: TENAMFETAMINE
     Route: 065
  38. TENAMFETAMINE [Suspect]
     Active Substance: TENAMFETAMINE

REACTIONS (6)
  - Substance abuse [Unknown]
  - Disorientation [Unknown]
  - Behaviour disorder [Unknown]
  - Withdrawal syndrome [Unknown]
  - Aggression [Unknown]
  - Intentional product misuse [Unknown]
